FAERS Safety Report 6573923-5 (Version None)
Quarter: 2010Q1

REPORT INFORMATION
  Report Type: 
  Country: None (occurrence: None)
  Receive Date: 20100208
  Receipt Date: 20100203
  Transmission Date: 20100710
  Serious: Yes (Death, Hospitalization)
  Sender: FDA-Public Use
  Company Number: BR-ABBOTT-10P-020-0624097-00

PATIENT
  Sex: Male
  Weight: 70 kg

DRUGS (10)
  1. HUMIRA [Suspect]
     Indication: JUVENILE ARTHRITIS
  2. MABTHERA [Suspect]
     Indication: JUVENILE ARTHRITIS
     Dates: end: 20090401
  3. ARAVA [Suspect]
     Indication: JUVENILE ARTHRITIS
  4. ACTEMRA [Suspect]
     Indication: JUVENILE ARTHRITIS
     Dates: start: 20091002, end: 20100104
  5. CHLOROQUINE PHOSPHATE [Concomitant]
     Indication: JUVENILE ARTHRITIS
  6. METHOTREXATE [Concomitant]
     Indication: JUVENILE ARTHRITIS
  7. PREDNISONE [Concomitant]
     Indication: JUVENILE ARTHRITIS
  8. OS-CAL D [Concomitant]
     Indication: OSTEOPOROSIS PROPHYLAXIS
  9. CITALOPRAM [Concomitant]
     Indication: ANXIETY
  10. CLONAZEPAM [Concomitant]
     Indication: ANXIETY

REACTIONS (7)
  - ANURIA [None]
  - BLOOD PRESSURE DECREASED [None]
  - DEHYDRATION [None]
  - DIARRHOEA [None]
  - MEGACOLON [None]
  - PYREXIA [None]
  - SEPSIS [None]
